FAERS Safety Report 19468210 (Version 1)
Quarter: 2021Q2

REPORT INFORMATION
  Report Type: Report from Study
  Country: CA (occurrence: CA)
  Receive Date: 20210628
  Receipt Date: 20210628
  Transmission Date: 20210717
  Serious: Yes (Other)
  Sender: FDA-Public Use
  Company Number: CA-ASTRAZENECA-2021A375749

PATIENT
  Age: 71 Year
  Sex: Male
  Weight: 74 kg

DRUGS (5)
  1. PREDNISONE. [Concomitant]
     Active Substance: PREDNISONE
     Indication: CONDITION AGGRAVATED
     Route: 048
     Dates: start: 20210315, end: 20210419
  2. PREDNISONE. [Concomitant]
     Active Substance: PREDNISONE
     Indication: CONDITION AGGRAVATED
     Route: 048
     Dates: start: 20210419
  3. PREDNISONE. [Concomitant]
     Active Substance: PREDNISONE
     Indication: VASCULITIS
     Route: 048
     Dates: start: 20210315, end: 20210419
  4. FASENRA [Suspect]
     Active Substance: BENRALIZUMAB
     Indication: ASTHMA
     Dosage: UNKNOWN
     Route: 058
  5. PREDNISONE. [Concomitant]
     Active Substance: PREDNISONE
     Indication: VASCULITIS
     Route: 048
     Dates: start: 20210419

REACTIONS (4)
  - Myalgia [Recovering/Resolving]
  - Influenza like illness [Recovering/Resolving]
  - Tenderness [Unknown]
  - Vasculitis [Recovering/Resolving]

NARRATIVE: CASE EVENT DATE: 20210405
